FAERS Safety Report 22384281 (Version 2)
Quarter: 2023Q2

REPORT INFORMATION
  Report Type: Spontaneous
  Country: US (occurrence: US)
  Receive Date: 20230530
  Receipt Date: 20230607
  Transmission Date: 20230722
  Serious: No
  Sender: FDA-Public Use
  Company Number: US-ALKERMES INC.-ALK-2023-002138

PATIENT
  Sex: Male
  Weight: 217.69 kg

DRUGS (4)
  1. ARISTADA [Suspect]
     Active Substance: ARIPIPRAZOLE LAUROXIL
     Indication: Schizophrenia
     Dosage: 1064 MILLIGRAM, Q4WK
     Route: 030
     Dates: start: 2022
  2. ARISTADA [Suspect]
     Active Substance: ARIPIPRAZOLE LAUROXIL
     Indication: Affective disorder
  3. UNSPECIFIED INGREDIENT [Concomitant]
     Active Substance: UNSPECIFIED INGREDIENT
     Indication: Anxiety
     Dosage: UNK
     Route: 065
  4. UNSPECIFIED INGREDIENT [Concomitant]
     Active Substance: UNSPECIFIED INGREDIENT
     Indication: Alcoholism

REACTIONS (10)
  - Off label use [Not Recovered/Not Resolved]
  - Product administered at inappropriate site [None]
  - Influenza like illness [Unknown]
  - Hunger [Unknown]
  - Condition aggravated [Unknown]
  - Social problem [Unknown]
  - Exercise lack of [Unknown]
  - Feeling abnormal [Unknown]
  - Fatigue [Unknown]
  - Somnolence [Unknown]

NARRATIVE: CASE EVENT DATE: 20220101
